FAERS Safety Report 9400224 (Version 1)
Quarter: 2013Q3

REPORT INFORMATION
  Report Type: Spontaneous
  Country: US (occurrence: US)
  Receive Date: 20130715
  Receipt Date: 20130715
  Transmission Date: 20140515
  Serious: Yes (Other)
  Sender: FDA-Public Use
  Company Number: US-BAYER-2013-085119

PATIENT
  Sex: Female

DRUGS (1)
  1. STIVARGA [Suspect]
     Indication: COLORECTAL CANCER
     Dosage: UNK UNK, ONCE
     Route: 048

REACTIONS (3)
  - Gastrointestinal toxicity [None]
  - Nausea [None]
  - Vomiting [None]
